FAERS Safety Report 22125006 (Version 1)
Quarter: 2023Q1

REPORT INFORMATION
  Report Type: Spontaneous
  Country: CA (occurrence: CA)
  Receive Date: 20230322
  Receipt Date: 20230322
  Transmission Date: 20230418
  Serious: Yes (Hospitalization)
  Sender: FDA-Public Use
  Company Number: CA-JNJFOC-20230347746

PATIENT
  Age: 22 Year
  Sex: Male

DRUGS (12)
  1. REMICADE [Suspect]
     Active Substance: INFLIXIMAB
     Indication: Crohn^s disease
     Route: 041
  2. INFLIXIMAB [Suspect]
     Active Substance: INFLIXIMAB
     Indication: Crohn^s disease
     Route: 042
  3. INFLIXIMAB [Suspect]
     Active Substance: INFLIXIMAB
     Route: 042
  4. INFLIXIMAB [Suspect]
     Active Substance: INFLIXIMAB
     Route: 042
  5. INFLIXIMAB [Suspect]
     Active Substance: INFLIXIMAB
     Route: 042
  6. CLONAZEPAM [Concomitant]
     Active Substance: CLONAZEPAM
     Route: 048
  7. IRON [Concomitant]
     Active Substance: IRON
     Route: 048
  8. IRON [Concomitant]
     Active Substance: IRON
     Route: 048
  9. LITHIUM [Concomitant]
     Active Substance: LITHIUM
     Route: 048
  10. LITHIUM [Concomitant]
     Active Substance: LITHIUM
     Route: 048
  11. TESTOSTERONE [Concomitant]
     Active Substance: TESTOSTERONE
     Route: 058
  12. TESTOSTERONE [Concomitant]
     Active Substance: TESTOSTERONE
     Route: 058

REACTIONS (3)
  - Mania [Unknown]
  - Mental disorder [Unknown]
  - Off label use [Unknown]
